FAERS Safety Report 4954468-2 (Version None)
Quarter: 2006Q1

REPORT INFORMATION
  Report Type: 
  Country: None (occurrence: None)
  Receive Date: 20060327
  Receipt Date: 20040901
  Transmission Date: 20060701
  Serious: Yes (Other)
  Sender: FDA-Public Use
  Company Number: DE-BRISTOL-MYERS SQUIBB COMPANY-13309943

PATIENT
  Sex: Male
  Weight: 82 kg

DRUGS (14)
  1. VIDEX [Suspect]
     Indication: HIV INFECTION
     Dosage: DOSE REDUCED AND INTERRUPTED ON 09-DEC-2003, RESTARTED 09-MAR-2004.
     Dates: start: 19930101
  2. ZERIT [Suspect]
     Dosage: THERAPY INTERRUPTED ON 09-DEC-2003 AND RESTARTED 09-MAR-2004.
     Dates: start: 19950101
  3. REYATAZ [Suspect]
     Indication: HIV INFECTION
     Dates: start: 20040511
  4. RITONAVIR [Concomitant]
     Indication: HIV INFECTION
     Dosage: DOSE INCREASED TO 200 MG/D IN SEP-2004
     Dates: start: 20040511
  5. ZIDOVUDINE [Concomitant]
     Indication: HIV INFECTION
     Dates: start: 19890101
  6. NELFINAVIR [Concomitant]
     Indication: HIV INFECTION
     Dates: start: 19950101
  7. LAMIVUDINE [Concomitant]
     Indication: HIV INFECTION
     Dates: start: 19990101
  8. ABACAVIR [Concomitant]
     Indication: HIV INFECTION
     Dates: start: 19990101
  9. COMBIVIR [Concomitant]
     Indication: HIV INFECTION
     Dates: start: 20010701
  10. AMPRENAVIR [Concomitant]
     Indication: HIV INFECTION
     Dates: start: 20010701
  11. TRIZIVIR [Concomitant]
     Indication: HIV INFECTION
     Dates: start: 20011001
  12. TENOFOVIR [Concomitant]
     Indication: HIV INFECTION
  13. NEVIRAPINE [Concomitant]
     Indication: HIV INFECTION
     Dates: start: 20011201
  14. SAQUINAVIR [Concomitant]
     Indication: HIV INFECTION
     Dosage: DOSE INCREASED TO 2000 MG/D IN SEP-2004.
     Dates: start: 20040511

REACTIONS (15)
  - AIDS ENCEPHALOPATHY [None]
  - COUGH [None]
  - DECREASED APPETITE [None]
  - DIARRHOEA [None]
  - FATIGUE [None]
  - HYPOTONIA [None]
  - LIPOATROPHY [None]
  - LIVER DISORDER [None]
  - LYMPHADENOPATHY [None]
  - MULTIPLE-DRUG RESISTANCE [None]
  - NOCTURIA [None]
  - OESOPHAGEAL CANDIDIASIS [None]
  - POLYNEUROPATHY [None]
  - SPLENOMEGALY [None]
  - WEIGHT GAIN POOR [None]
